FAERS Safety Report 5994919-8 (Version None)
Quarter: 2008Q4

REPORT INFORMATION
  Report Type: 
  Country: None (occurrence: None)
  Receive Date: 20081212
  Receipt Date: 20080917
  Transmission Date: 20090506
  Serious: No
  Sender: FDA-Public Use
  Company Number: US-ABBOTT-08P-163-0476992-00

PATIENT
  Sex: Female
  Weight: 87.622 kg

DRUGS (2)
  1. HUMIRA [Suspect]
     Indication: RHEUMATOID ARTHRITIS
     Route: 050
     Dates: start: 20071201, end: 20080912
  2. NAPROXEN SODIUM [Concomitant]
     Indication: RHEUMATOID ARTHRITIS
     Route: 048

REACTIONS (4)
  - COUGH [None]
  - LOCAL SWELLING [None]
  - PAIN [None]
  - PYREXIA [None]
